FAERS Safety Report 5613125-X (Version None)
Quarter: 2008Q1

REPORT INFORMATION
  Report Type: 
  Country: None (occurrence: None)
  Receive Date: 20080204
  Receipt Date: 20080125
  Transmission Date: 20080703
  Serious: Yes (Hospitalization, Disabling)
  Sender: FDA-Public Use
  Company Number: US-MERCK-0609USA02889

PATIENT
  Age: 68 Year
  Sex: Female

DRUGS (11)
  1. FOSAMAX [Suspect]
     Indication: OSTEOPOROSIS
     Route: 048
     Dates: start: 20011201
  2. FOSAMAX [Suspect]
     Route: 048
     Dates: start: 20060323, end: 20060401
  3. CALCIUM (UNSPECIFIED) [Concomitant]
     Route: 065
     Dates: start: 20011201
  4. [THERAPY UNSPECIFIED] [Concomitant]
     Indication: RHEUMATOID ARTHRITIS
     Route: 065
     Dates: start: 19910101
  5. FOLIC ACID [Concomitant]
     Route: 048
  6. METHOTREXATE [Concomitant]
     Route: 048
  7. LOTREL [Concomitant]
     Route: 065
  8. SPIRIVA [Concomitant]
     Route: 065
  9. VICODIN TUSS EXPECTORANT [Concomitant]
     Route: 065
  10. SINGULAIR [Concomitant]
     Route: 048
  11. MUCINEX [Concomitant]
     Route: 065

REACTIONS (13)
  - ANAEMIA [None]
  - ANXIETY [None]
  - CEREBROVASCULAR ACCIDENT [None]
  - EMOTIONAL DISTRESS [None]
  - GINGIVAL RECESSION [None]
  - INJURY [None]
  - LOOSE TOOTH [None]
  - MENTAL DISORDER [None]
  - PAIN [None]
  - PAIN IN JAW [None]
  - RENAL FAILURE [None]
  - RESORPTION BONE INCREASED [None]
  - VASCULITIS [None]
